FAERS Safety Report 8037198-2 (Version None)
Quarter: 2012Q1

REPORT INFORMATION
  Report Type: 
  Country: None (occurrence: None)
  Receive Date: 20120111
  Receipt Date: 20120102
  Transmission Date: 20120608
  Serious: Yes (Death)
  Sender: FDA-Public Use
  Company Number: US-BAYER-2012-001864

PATIENT
  Age: 45 Year
  Sex: Female

DRUGS (10)
  1. CLONAZEPAM [Suspect]
  2. TEMAZEPAM [Suspect]
  3. NAPROXEN SODIUM [Suspect]
  4. DIAZEPAM [Suspect]
  5. MONTELUKAST [Suspect]
  6. PHENOBARBITAL TAB [Suspect]
  7. SPIRONOLACTONE [Suspect]
  8. TOPIRAMATE [Suspect]
  9. GABAPENTIN [Suspect]
  10. PROGESTIN INJ [Suspect]

REACTIONS (1)
  - TOXICITY TO VARIOUS AGENTS [None]
